APPROVED DRUG PRODUCT: TIGECYCLINE
Active Ingredient: TIGECYCLINE
Strength: 50MG/VIAL
Dosage Form/Route: POWDER;INTRAVENOUS
Application: A204439 | Product #001 | TE Code: AP
Applicant: APOTEX INC
Approved: Dec 21, 2018 | RLD: No | RS: No | Type: RX